FAERS Safety Report 8516304-7 (Version None)
Quarter: 2012Q3

REPORT INFORMATION
  Report Type: 
  Country: None (occurrence: None)
  Receive Date: 20120717
  Receipt Date: 20120706
  Transmission Date: 20120928
  Serious: No
  Sender: FDA-Public Use
  Company Number: US-009507513-1207USA002269

PATIENT

DRUGS (1)
  1. REMERON [Suspect]
     Dosage: UNK

REACTIONS (2)
  - SOMNOLENCE [None]
  - POOR QUALITY SLEEP [None]
